FAERS Safety Report 8406546-3 (Version None)
Quarter: 2012Q2

REPORT INFORMATION
  Report Type: 
  Country: None (occurrence: None)
  Receive Date: 20120529
  Receipt Date: 20060217
  Transmission Date: 20120825
  Serious: Yes (Other)
  Sender: FDA-Public Use
  Company Number: JP-2012-14263

PATIENT
  Age: 70 Year
  Sex: Male

DRUGS (4)
  1. ATELEC (CLINIDIPINE) [Concomitant]
  2. PLETAL [Suspect]
     Indication: CEREBRAL INFARCTION
     Dosage: 100 MG MILLIGRAM(S), BID, ORAL
     Route: 048
     Dates: start: 20031126, end: 20031224
  3. CANDESARTAN CILEXETIL [Concomitant]
  4. ALLOPURINOL [Concomitant]

REACTIONS (2)
  - BLOOD TRIGLYCERIDES INCREASED [None]
  - TACHYCARDIA [None]
